FAERS Safety Report 4898015-2 (Version None)
Quarter: 2006Q1

REPORT INFORMATION
  Report Type: 
  Country: None (occurrence: None)
  Receive Date: 20060201
  Receipt Date: 20060123
  Transmission Date: 20060701
  Serious: Yes (Life-Threatening)
  Sender: FDA-Public Use
  Company Number: AU-ROCHE-433359

PATIENT
  Age: 15 Year
  Sex: Female

DRUGS (1)
  1. NAPROSYN [Suspect]
     Indication: SENSORY DISTURBANCE
     Dosage: DOSING FREQUENCY REPORTED AS 1 TIME.
     Route: 048
     Dates: start: 20040321, end: 20040321

REACTIONS (6)
  - MOUTH ULCERATION [None]
  - NASAL OEDEMA [None]
  - PHARYNGEAL OEDEMA [None]
  - PRURITUS [None]
  - SWELLING FACE [None]
  - VAGINAL INFECTION [None]
